FAERS Safety Report 25639674 (Version 1)
Quarter: 2025Q3

REPORT INFORMATION
  Report Type: Report from Study
  Country: US (occurrence: US)
  Receive Date: 20250804
  Receipt Date: 20250804
  Transmission Date: 20251020
  Serious: No
  Sender: AURINIA PHARMACEUTICALS
  Company Number: US-AURINIA PHARMACEUTICALS INC.-AUR-008331

PATIENT
  Age: 36 Year
  Sex: Female
  Weight: 111.1 kg

DRUGS (15)
  1. LUPKYNIS [Suspect]
     Active Substance: VOCLOSPORIN
     Indication: Lupus nephritis
     Dosage: 39.5 MILLIGRAM, QD
     Route: 048
     Dates: start: 20221005
  2. FERROUS SULFATE [Concomitant]
     Active Substance: FERROUS SULFATE
     Indication: Iron deficiency
  3. HYDROCHLOROTHIAZIDE [Concomitant]
     Active Substance: HYDROCHLOROTHIAZIDE
     Indication: Product used for unknown indication
  4. LOSARTAN [Concomitant]
     Active Substance: LOSARTAN
     Indication: Hypertension
  5. LOPRESSOR [Concomitant]
     Active Substance: METOPROLOL TARTRATE
     Indication: Hypertension
  6. CELLCEPT [Concomitant]
     Active Substance: MYCOPHENOLATE MOFETIL
     Indication: Product used for unknown indication
  7. MICRONOR [Concomitant]
     Active Substance: NORETHINDRONE
     Indication: Product used for unknown indication
  8. PREDNISONE [Concomitant]
     Active Substance: PREDNISONE
     Indication: Product used for unknown indication
  9. SODIUM BICARBONATE [Concomitant]
     Active Substance: SODIUM BICARBONATE
     Indication: Product used for unknown indication
  10. ALDACTONE [Concomitant]
     Active Substance: SPIRONOLACTONE
     Indication: Product used for unknown indication
  11. BENLYSTA [Concomitant]
     Active Substance: BELIMUMAB
     Indication: Product used for unknown indication
  12. HYDROXYCHLOROQUINE [Concomitant]
     Active Substance: HYDROXYCHLOROQUINE
     Indication: Product used for unknown indication
  13. METOPROLOL [Concomitant]
     Active Substance: METOPROLOL
     Indication: Product used for unknown indication
  14. SPIRONOLACTONE [Concomitant]
     Active Substance: SPIRONOLACTONE
     Indication: Product used for unknown indication
  15. PLAQUENIL [Concomitant]
     Active Substance: HYDROXYCHLOROQUINE SULFATE
     Indication: Product used for unknown indication

REACTIONS (2)
  - Joint swelling [Recovered/Resolved]
  - Urinary tract infection [Recovered/Resolved]

NARRATIVE: CASE EVENT DATE: 20231106
